FAERS Safety Report 10534041 (Version 5)
Quarter: 2014Q4

REPORT INFORMATION
  Report Type: Report from Study
  Country: US (occurrence: US)
  Receive Date: 20141022
  Receipt Date: 20141224
  Transmission Date: 20150529
  Serious: Yes (Hospitalization)
  Sender: FDA-Public Use
  Company Number: US-SA-2014SA072359

PATIENT
  Age: 55 Year
  Sex: Male
  Weight: 121.4 kg

DRUGS (7)
  1. IMODIUM A-D [Concomitant]
     Active Substance: LOPERAMIDE HYDROCHLORIDE
     Indication: DIARRHOEA
     Route: 048
     Dates: start: 2013
  2. AFLIBERCEPT [Suspect]
     Active Substance: AFLIBERCEPT
     Indication: NEOPLASM MALIGNANT
     Route: 042
     Dates: start: 20140521, end: 20140521
  3. SAR307746 [Suspect]
     Active Substance: UNSPECIFIED INGREDIENT
     Indication: NEOPLASM MALIGNANT
     Route: 042
     Dates: start: 20140320, end: 20140320
  4. SAR307746 [Suspect]
     Active Substance: UNSPECIFIED INGREDIENT
     Indication: NEOPLASM MALIGNANT
     Route: 042
     Dates: start: 20140521, end: 20140521
  5. TRAMADOL [Concomitant]
     Active Substance: TRAMADOL
     Indication: MUSCULOSKELETAL PAIN
     Route: 048
     Dates: start: 20140501
  6. AFLIBERCEPT [Suspect]
     Active Substance: AFLIBERCEPT
     Indication: NEOPLASM MALIGNANT
     Route: 042
     Dates: start: 20140320, end: 20140320
  7. NORVASC [Concomitant]
     Active Substance: AMLODIPINE BESYLATE
     Indication: HYPERTENSION
     Route: 048
     Dates: start: 20140321, end: 20140529

REACTIONS (1)
  - Leukoencephalopathy [Recovered/Resolved with Sequelae]

NARRATIVE: CASE EVENT DATE: 20140528
